FAERS Safety Report 9059629 (Version 1)
Quarter: 2013Q2

REPORT INFORMATION
  Report Type: Spontaneous
  Country: US (occurrence: None)
  Receive Date: 20130206
  Receipt Date: 20130206
  Transmission Date: 20140414
  Serious: Yes (Other)
  Sender: FDA-Public Use
  Company Number: None

PATIENT
  Age: 68 Year
  Sex: Female

DRUGS (1)
  1. RANIBIZUMAB [Suspect]
     Dosage: INTRAVITREAL INJECTION LEFT EYE
     Dates: start: 20130110

REACTIONS (3)
  - Vitreous haemorrhage [None]
  - Retinal aneurysm [None]
  - Vascular rupture [None]
